FAERS Safety Report 7076228-1 (Version None)
Quarter: 2010Q4

REPORT INFORMATION
  Report Type: 
  Country: None (occurrence: None)
  Receive Date: 20101101
  Receipt Date: 20101022
  Transmission Date: 20110411
  Serious: Yes (Hospitalization, Other)
  Sender: FDA-Public Use
  Company Number: GB-US-EMD SERONO, INC.-230311J09GBR

PATIENT
  Sex: Male

DRUGS (2)
  1. REBIF [Suspect]
     Indication: OFF LABEL USE
     Dates: start: 20081103
  2. REBIF [Suspect]
     Dates: end: 20100301

REACTIONS (6)
  - DEPRESSION [None]
  - MULTIPLE SCLEROSIS RELAPSE [None]
  - OBSESSIVE-COMPULSIVE DISORDER [None]
  - OFF LABEL USE [None]
  - VIITH NERVE PARALYSIS [None]
  - WEIGHT DECREASED [None]
